FAERS Safety Report 7864446-1 (Version None)
Quarter: 2011Q4

REPORT INFORMATION
  Report Type: 
  Country: None (occurrence: None)
  Receive Date: 20111028
  Receipt Date: 20111024
  Transmission Date: 20120403
  Serious: Yes (Death, Other)
  Sender: FDA-Public Use
  Company Number: PHEH2011US07663

PATIENT
  Sex: Male

DRUGS (1)
  1. EXJADE [Suspect]
     Indication: IRON OVERLOAD
     Dosage: 1000 MG, QD
     Route: 048
     Dates: start: 20101229

REACTIONS (4)
  - ANGINA UNSTABLE [None]
  - MYELODYSPLASTIC SYNDROME TRANSFORMATION [None]
  - LEUKAEMIA [None]
  - CORONARY ARTERY DISEASE [None]
